FAERS Safety Report 5228344-4 (Version None)
Quarter: 2007Q1

REPORT INFORMATION
  Report Type: 
  Country: None (occurrence: None)
  Receive Date: 20070131
  Receipt Date: 20070119
  Transmission Date: 20070707
  Serious: Yes (Hospitalization)
  Sender: FDA-Public Use
  Company Number: T200700087

PATIENT
  Age: 75 Year
  Sex: Female

DRUGS (1)
  1. OPTIRAY 300 [Suspect]
     Indication: COMPUTERISED TOMOGRAM
     Dosage: 90 ML, SINGLE, INTRAVENOUS
     Route: 042
     Dates: start: 20061121, end: 20061121

REACTIONS (4)
  - CHEST PAIN [None]
  - NAUSEA [None]
  - RETCHING [None]
  - SYNCOPE [None]
